FAERS Safety Report 21004451 (Version 1)
Quarter: 2022Q2

REPORT INFORMATION
  Report Type: Spontaneous
  Country: US (occurrence: None)
  Receive Date: 20220624
  Receipt Date: 20220624
  Transmission Date: 20220721
  Serious: No
  Sender: FDA-Public Use
  Company Number: 2022A222120

PATIENT
  Sex: Male

DRUGS (2)
  1. CRESTOR [Suspect]
     Active Substance: ROSUVASTATIN CALCIUM
     Route: 048
  2. ROSUVASTATIN [Suspect]
     Active Substance: ROSUVASTATIN
     Dosage: 20.0MG UNKNOWN
     Route: 065

REACTIONS (7)
  - Cardiac disorder [Unknown]
  - Blood cholesterol decreased [Unknown]
  - Malaise [Unknown]
  - Anxiety [Unknown]
  - Pain in extremity [Unknown]
  - Muscular weakness [Unknown]
  - Muscle discomfort [Unknown]
